FAERS Safety Report 4800099-4 (Version None)
Quarter: 2005Q4

REPORT INFORMATION
  Report Type: 
  Country: None (occurrence: None)
  Receive Date: 20051012
  Receipt Date: 20051012
  Transmission Date: 20060501
  Serious: Yes (Hospitalization)
  Sender: FDA-Public Use
  Company Number: None

PATIENT
  Sex: Female
  Weight: 90.7194 kg

DRUGS (3)
  1. CLINDAMYCIN [Suspect]
     Indication: DENTAL TREATMENT
     Dosage: PO [PRIOR TO ADMISSION]
     Route: 048
  2. VICOPROFEN [Concomitant]
  3. OXYCODONE [Concomitant]

REACTIONS (3)
  - CHEST DISCOMFORT [None]
  - DYSPNOEA [None]
  - THROAT TIGHTNESS [None]
